FAERS Safety Report 8328392-1 (Version None)
Quarter: 2012Q2

REPORT INFORMATION
  Report Type: 
  Country: None (occurrence: None)
  Receive Date: 20120502
  Receipt Date: 20120423
  Transmission Date: 20120825
  Serious: Yes (Hospitalization)
  Sender: FDA-Public Use
  Company Number: US-BAYER-2011-084621

PATIENT
  Age: 28 Year
  Sex: Female
  Weight: 172.34 kg

DRUGS (22)
  1. LORTAB [Concomitant]
     Indication: FIBROMYALGIA
     Dosage: UNK
     Route: 048
     Dates: start: 20080901, end: 20100601
  2. TIZANIDINE HYDROCHLORIDE [Concomitant]
     Indication: FIBROMYALGIA
     Dosage: 1-2, HS
     Route: 048
     Dates: start: 20020801, end: 20100601
  3. ZYPREXA [Concomitant]
     Indication: BIPOLAR DISORDER
     Dosage: 20 MG, QD
     Route: 048
     Dates: start: 20021204, end: 20090101
  4. VITAMIN C [Concomitant]
  5. IRON [Concomitant]
     Indication: MEDICAL DIET
     Dosage: 325 MG, QD
     Route: 048
     Dates: start: 20070501, end: 20100601
  6. LYRICA [Concomitant]
     Indication: FIBROMYALGIA
     Dosage: 200 MG, BID
     Route: 048
     Dates: start: 20080329, end: 20100701
  7. CYCLOBENZAPRINE [Concomitant]
     Dosage: 1-2, HS
     Route: 048
     Dates: start: 20080605, end: 20080904
  8. YAZ [Suspect]
  9. LEXAPRO [Concomitant]
     Dosage: 20 MG, HS
     Route: 048
     Dates: start: 20041116, end: 20090101
  10. CYCLOBENZAPRINE [Concomitant]
     Indication: FIBROMYALGIA
     Dosage: 1-2, HS
     Route: 048
     Dates: start: 20080325, end: 20091003
  11. PROVIGIL [Concomitant]
     Dosage: 200 MG, BID PRN
     Route: 048
     Dates: start: 20080611, end: 20080918
  12. FLUOCINONIDE [Concomitant]
     Dosage: UNK, BID PRN
     Route: 061
     Dates: start: 20080904
  13. YAZ [Suspect]
     Indication: PREMENSTRUAL SYNDROME
  14. CALCIUM +VIT D [Concomitant]
     Indication: MEDICAL DIET
     Dosage: UNK UNK, QD
     Route: 048
     Dates: start: 20070501, end: 20100601
  15. VITAMIN C [Concomitant]
     Indication: MEDICAL DIET
     Dosage: 500 MG,DAILY
     Route: 048
     Dates: start: 20070501, end: 20100601
  16. LYRICA [Concomitant]
     Dosage: 200 MG, BID
     Route: 048
     Dates: start: 20080605, end: 20080904
  17. PROVIGIL [Concomitant]
     Indication: SLEEP APNOEA SYNDROME
     Dosage: 200 MG, BID PRN
     Route: 048
     Dates: start: 20071201, end: 20100601
  18. YAZ [Suspect]
     Indication: CONTRACEPTION
     Dosage: UNK
     Dates: start: 20071230, end: 20080918
  19. MULTIPLE VITAMINS [Concomitant]
     Indication: MEDICAL DIET
     Dosage: UNK UNK, QD
     Route: 048
     Dates: start: 20070501, end: 20100601
  20. VITAMIN B12 [Concomitant]
     Indication: MEDICAL DIET
     Dosage: 1000 MCG/24HR, QD
     Route: 048
     Dates: start: 20070501, end: 20100601
  21. VITAMIN C [Concomitant]
  22. ECHINACEA [Concomitant]
     Indication: MEDICAL DIET
     Dosage: 400 MG, QD
     Route: 048
     Dates: start: 20080818

REACTIONS (15)
  - DEEP VEIN THROMBOSIS [None]
  - EMOTIONAL DISTRESS [None]
  - HYPOAESTHESIA [None]
  - MUSCULAR WEAKNESS [None]
  - PAIN IN EXTREMITY [None]
  - MYALGIA [None]
  - DISTURBANCE IN ATTENTION [None]
  - PULMONARY EMBOLISM [None]
  - CRYING [None]
  - ANXIETY [None]
  - DEPRESSION [None]
  - INSOMNIA [None]
  - CHEST DISCOMFORT [None]
  - DYSPNOEA [None]
  - FEAR [None]
